FAERS Safety Report 8186402-9 (Version None)
Quarter: 2012Q1

REPORT INFORMATION
  Report Type: 
  Country: None (occurrence: None)
  Receive Date: 20120306
  Receipt Date: 20120224
  Transmission Date: 20120608
  Serious: Yes (Other)
  Sender: FDA-Public Use
  Company Number: JP-US-EMD SERONO, INC.-7115120

PATIENT
  Sex: Female
  Weight: 49 kg

DRUGS (6)
  1. GONAL-F RFF PEN [Suspect]
     Indication: ANOVULATORY CYCLE
     Route: 058
     Dates: start: 20110913, end: 20110922
  2. CHORIONIC GONADOTROPIN [Concomitant]
     Indication: ANOVULATORY CYCLE
     Route: 058
     Dates: start: 20110923, end: 20110923
  3. CHORIONIC GONADOTROPIN [Concomitant]
     Indication: OVULATION INDUCTION
  4. GONAL-F RFF PEN [Suspect]
     Indication: AMENORRHOEA
  5. CHORIONIC GONADOTROPIN [Concomitant]
     Indication: AMENORRHOEA
     Route: 058
     Dates: start: 20110926, end: 20110926
  6. GONAL-F RFF PEN [Suspect]
     Indication: OVULATION INDUCTION

REACTIONS (1)
  - TWIN PREGNANCY [None]
